FAERS Safety Report 5760492-2 (Version None)
Quarter: 2008Q2

REPORT INFORMATION
  Report Type: 
  Country: None (occurrence: None)
  Receive Date: 20080605
  Receipt Date: 20080527
  Transmission Date: 20081010
  Serious: Yes (Other)
  Sender: FDA-Public Use
  Company Number: BR-PFIZER INC-2008046435

PATIENT
  Sex: Female
  Weight: 68 kg

DRUGS (2)
  1. DEPO-PROVERA SUSPENSION/INJ [Suspect]
     Indication: CONTRACEPTION
     Dosage: FREQ:1ST INJECTION, TRIMESTRAL
     Dates: start: 20080108, end: 20080108
  2. DEPO-PROVERA SUSPENSION/INJ [Suspect]
     Dosage: FREQ:2ND INJECTION, TRIMESTRAL
     Dates: start: 20080408, end: 20080408

REACTIONS (3)
  - AMENORRHOEA [None]
  - METRORRHAGIA [None]
  - RENAL CYST [None]
